FAERS Safety Report 21503460 (Version 1)
Quarter: 2022Q4

REPORT INFORMATION
  Report Type: Spontaneous
  Country: US (occurrence: None)
  Receive Date: 20221024
  Receipt Date: 20221024
  Transmission Date: 20230113
  Serious: Yes (Hospitalization)
  Sender: FDA-Public Use
  Company Number: None

PATIENT
  Age: 20 Year
  Sex: Male

DRUGS (1)
  1. CIMZIA [Suspect]
     Active Substance: CERTOLIZUMAB PEGOL
     Dosage: 400MG OTHER SUBCUTANEOUS
     Route: 058
     Dates: start: 202003

REACTIONS (1)
  - Seizure [None]

NARRATIVE: CASE EVENT DATE: 20220901
